FAERS Safety Report 8140909 (Version 2)
Quarter: 2013Q3

REPORT INFORMATION
  Report Type: Spontaneous
  Country: US (occurrence: US)
  Receive Date: 20110916
  Receipt Date: 20130701
  Transmission Date: 20140515
  Serious: Yes (Other)
  Sender: FDA-Public Use
  Company Number: US-US-EMD SERONO, INC.-7068719

PATIENT
  Sex: Female

DRUGS (3)
  1. REBIF [Suspect]
     Indication: MULTIPLE SCLEROSIS
     Dates: start: 2004, end: 2006
  2. REBIF [Suspect]
     Route: 058
     Dates: start: 20070515, end: 201104
  3. REBIF [Suspect]
     Route: 058
     Dates: start: 20110920

REACTIONS (3)
  - Arthritis [Unknown]
  - Carpal tunnel syndrome [Unknown]
  - Tremor [Recovering/Resolving]
